FAERS Safety Report 6772632-7 (Version None)
Quarter: 2010Q2

REPORT INFORMATION
  Report Type: 
  Country: None (occurrence: None)
  Receive Date: 20100616
  Receipt Date: 20090601
  Transmission Date: 20101027
  Serious: No
  Sender: FDA-Public Use
  Company Number: US-ASTRAZENECA-2009UW13902

PATIENT
  Age: 27118 Day
  Sex: Female
  Weight: 86.2 kg

DRUGS (6)
  1. PULMICORT RESPULES [Suspect]
     Route: 055
     Dates: start: 20090522
  2. COMBIVENT [Concomitant]
  3. NORVASC [Concomitant]
  4. RESCUE INHALER [Concomitant]
  5. NEXIUM [Concomitant]
  6. SUPPLEMENTS [Concomitant]

REACTIONS (1)
  - THROAT TIGHTNESS [None]
